FAERS Safety Report 16291325 (Version 1)
Quarter: 2019Q2

REPORT INFORMATION
  Report Type: Spontaneous
  Country: US (occurrence: US)
  Receive Date: 20190509
  Receipt Date: 20190509
  Transmission Date: 20190711
  Serious: Yes (Hospitalization)
  Sender: FDA-Public Use
  Company Number: US-MYLANLABS-2019M1044607

PATIENT
  Age: 76 Year
  Sex: Female

DRUGS (1)
  1. MITOMYCIN. [Suspect]
     Active Substance: MITOMYCIN
     Indication: CONJUNCTIVAL MELANOMA
     Route: 061

REACTIONS (1)
  - Corneal disorder [Recovering/Resolving]
